FAERS Safety Report 6655670-4 (Version None)
Quarter: 2010Q1

REPORT INFORMATION
  Report Type: 
  Country: None (occurrence: None)
  Receive Date: 20100329
  Receipt Date: 20100318
  Transmission Date: 20100710
  Serious: Yes (Other)
  Sender: FDA-Public Use
  Company Number: GB-JNJFOC-20100306360

PATIENT
  Sex: Female

DRUGS (8)
  1. REMICADE [Suspect]
     Indication: CROHN'S DISEASE
     Dosage: LAST INFUSION
     Route: 042
  2. AMLODIPINE [Concomitant]
  3. ASACOL [Concomitant]
  4. SIMVASTATIN [Concomitant]
  5. ALENDRONATE ACID [Concomitant]
  6. LISINOPRIL [Concomitant]
  7. HYDROXOCOBALAMIN [Concomitant]
     Route: 050
  8. CALCICHEW [Concomitant]

REACTIONS (1)
  - SQUAMOUS CELL CARCINOMA [None]
